FAERS Safety Report 4717914-5 (Version None)
Quarter: 2005Q3

REPORT INFORMATION
  Report Type: 
  Country: None (occurrence: None)
  Receive Date: 20050718
  Receipt Date: 20050411
  Transmission Date: 20060218
  Serious: Yes (Other)
  Sender: FDA-Public Use
  Company Number: 2005060316

PATIENT
  Age: 14 Year
  Sex: Male

DRUGS (1)
  1. GEODON [Suspect]
     Indication: ILL-DEFINED DISORDER
     Dosage: UNKNOWN (20 MG, UNKNOWN), INTRAMUSCULAR
     Route: 030

REACTIONS (1)
  - DYSTONIA [None]
